FAERS Safety Report 6907930-7 (Version None)
Quarter: 2010Q3

REPORT INFORMATION
  Report Type: 
  Country: None (occurrence: None)
  Receive Date: 20100805
  Receipt Date: 20100723
  Transmission Date: 20110219
  Serious: Yes (Death, Hospitalization)
  Sender: FDA-Public Use
  Company Number: ZA-SANOFI-AVENTIS-2010SA043789

PATIENT
  Age: 88 Year
  Sex: Male

DRUGS (4)
  1. KETEK [Suspect]
     Indication: BRONCHOPNEUMONIA
     Dates: start: 20100526
  2. MESTINON [Concomitant]
     Indication: MYASTHENIA GRAVIS
     Dates: start: 20000101
  3. SLOW-K [Concomitant]
  4. PREDNISONE [Concomitant]

REACTIONS (2)
  - MEDICATION ERROR [None]
  - RESPIRATORY FAILURE [None]
